FAERS Safety Report 8887089 (Version 1)
Quarter: 2012Q4

REPORT INFORMATION
  Report Type: 
  Country: EC (occurrence: EC)
  Receive Date: 20121105
  Receipt Date: 20121105
  Transmission Date: 20130627
  Serious: Yes (Hospitalization)
  Sender: FDA-Public Use
  Company Number: PHHY2012EC100852

PATIENT
  Age: 53 Year
  Sex: Male

DRUGS (2)
  1. EXFORGE HCT [Suspect]
     Indication: HYPERTENSION
     Dosage: 1 DF (160/10/12.5) daily
     Route: 048
     Dates: start: 2011, end: 20121024
  2. CONCOR [Concomitant]

REACTIONS (2)
  - Infarction [Recovering/Resolving]
  - Cerebrovascular accident [Recovering/Resolving]
